FAERS Safety Report 24003619 (Version 1)
Quarter: 2024Q2

REPORT INFORMATION
  Report Type: Spontaneous
  Country: US (occurrence: US)
  Receive Date: 20240624
  Receipt Date: 20240624
  Transmission Date: 20240715
  Serious: No
  Sender: FDA-Public Use
  Company Number: US-ABBVIE-5811415

PATIENT
  Age: 62 Year
  Sex: Female

DRUGS (1)
  1. QULIPTA [Suspect]
     Active Substance: ATOGEPANT
     Indication: Migraine
     Dosage: FORM STRENGTH: 60 MILLIGRAM
     Route: 048
     Dates: start: 20231017, end: 20240422

REACTIONS (6)
  - Rash papular [Recovered/Resolved]
  - Tinnitus [Recovered/Resolved]
  - Foreign body sensation in eyes [Recovered/Resolved]
  - Skin discolouration [Recovered/Resolved]
  - Dark circles under eyes [Recovered/Resolved]
  - Erythema of eyelid [Recovered/Resolved]

NARRATIVE: CASE EVENT DATE: 20240401
